FAERS Safety Report 7982539-5 (Version None)
Quarter: 2011Q4

REPORT INFORMATION
  Report Type: 
  Country: None (occurrence: None)
  Receive Date: 20111215
  Receipt Date: 20111201
  Transmission Date: 20120403
  Serious: Yes (Hospitalization)
  Sender: FDA-Public Use
  Company Number: DE-AMGEN-US408084

PATIENT
  Age: 16 Year
  Sex: Female
  Weight: 51 kg

DRUGS (3)
  1. NAPROXEN [Concomitant]
     Dosage: UNK UNK, UNK
     Dates: start: 20100401
  2. ENBREL [Suspect]
     Indication: PSORIATIC ARTHROPATHY
     Dosage: 25 MG, 2 TIMES/WK
     Route: 058
     Dates: start: 20080201, end: 20100412
  3. METHOTREXATE [Suspect]
     Indication: PSORIATIC ARTHROPATHY
     Dosage: 15 MG, QWK
     Route: 065
     Dates: start: 20070501, end: 20100401

REACTIONS (1)
  - PANCREATITIS ACUTE [None]
